FAERS Safety Report 21614994 (Version 1)
Quarter: 2022Q4

REPORT INFORMATION
  Report Type: Spontaneous
  Country: FR (occurrence: FR)
  Receive Date: 20221118
  Receipt Date: 20221118
  Transmission Date: 20230113
  Serious: Yes (Hospitalization)
  Sender: FDA-Public Use
  Company Number: None

PATIENT
  Age: 66 Year
  Sex: Female
  Weight: 68 kg

DRUGS (4)
  1. METHOTREXATE [Suspect]
     Active Substance: METHOTREXATE
     Indication: B-cell lymphoma
     Dosage: UNIT DOSE : 3500 MG/M2, FREQUENCY TIME : 1 CYCLICAL, DURATION : 175 DAYS
     Route: 065
     Dates: start: 20220420, end: 20221012
  2. VINCRISTINE SULFATE [Suspect]
     Active Substance: VINCRISTINE SULFATE
     Indication: B-cell lymphoma
     Dosage: UNIT DOSE : 2 MG, FREQUENCY TIME : 1 CYCLICAL, DURATION : 112 DAYS
     Route: 065
     Dates: start: 20220420, end: 20220810
  3. PROCARBAZINE HYDROCHLORIDE [Suspect]
     Active Substance: PROCARBAZINE HYDROCHLORIDE
     Indication: B-cell lymphoma
     Dosage: UNIT DOSE : 100 MG/M2, FREQUENCY TIME : 1 CYCLICAL, DURATION : 167 DAYS
     Route: 065
     Dates: start: 20220420, end: 20221004
  4. RITUXIMAB [Suspect]
     Active Substance: RITUXIMAB
     Indication: B-cell lymphoma
     Dosage: UNIT DOSE : 375 MG/M2, FREQUENCY TIME : 1 CYCLICAL, DURATION : 188 DAYS
     Route: 065
     Dates: start: 20220420, end: 20221025

REACTIONS (1)
  - Hypoaesthesia [Recovering/Resolving]

NARRATIVE: CASE EVENT DATE: 20220620
